FAERS Safety Report 4868824-4 (Version None)
Quarter: 2005Q4

REPORT INFORMATION
  Report Type: 
  Country: None (occurrence: None)
  Receive Date: 20051223
  Receipt Date: 20051209
  Transmission Date: 20060501
  Serious: Yes (Hospitalization)
  Sender: FDA-Public Use
  Company Number: 219868

PATIENT
  Age: 73 Year
  Sex: Male
  Weight: 75 kg

DRUGS (9)
  1. AVASTIN [Suspect]
     Indication: COLORECTAL CANCER
     Dosage: 375 MG, Q2W; INTRAVENOUS
     Route: 042
     Dates: start: 20040930, end: 20050817
  2. OXALIPLATIN (OXALIPLATIN) [Suspect]
     Indication: COLORECTAL CANCER
     Dosage: 161 MG, Q2W; UNK
     Dates: start: 20040930, end: 20050622
  3. FLUOROURACIL [Suspect]
     Indication: COLORECTAL CANCER
     Dosage: 1900 MG,
     Dates: start: 20040930, end: 20050817
  4. LEUCOVORIN CALCIUM [Suspect]
     Indication: COLORECTAL CANCER
     Dosage: 380 MG,
     Dates: start: 20040930, end: 20050817
  5. ANGIOTENSIN CONVERTING ENZYME INHIBITOR NOS [Concomitant]
  6. BETA BLOCKER NOS [Concomitant]
  7. DIURETIC NOS [Concomitant]
  8. LOW MOLECULAR WEIGHT HEPARINS [Concomitant]
  9. ERTAPENEM       (ERTAPENEM SODIUM) [Concomitant]

REACTIONS (1)
  - PNEUMONIA [None]
